FAERS Safety Report 4359210-4 (Version None)
Quarter: 2004Q2

REPORT INFORMATION
  Report Type: 
  Country: None (occurrence: None)
  Receive Date: 20040517
  Receipt Date: 20040517
  Transmission Date: 20050107
  Serious: Yes (Other)
  Sender: FDA-Public Use
  Company Number: None

PATIENT
  Sex: Female
  Weight: 81.6475 kg

DRUGS (5)
  1. KWELL [Suspect]
     Indication: LICE INFESTATION
     Dosage: EACH ONE ONCE THEN FOLLOW UP IN 7 TO 10 DAYS LEAVE ON TEN MINUTES
     Dates: start: 20001001, end: 20010501
  2. RID MOUSSE [Suspect]
  3. NIX [Suspect]
  4. STORE BRANDS [Suspect]
  5. CLEAR OTHERS [Suspect]

REACTIONS (2)
  - BREAST CANCER [None]
  - DRUG INEFFECTIVE [None]
